FAERS Safety Report 24584266 (Version 1)
Quarter: 2024Q4

REPORT INFORMATION
  Report Type: Report from Study
  Country: US (occurrence: US)
  Receive Date: 20241106
  Receipt Date: 20241106
  Transmission Date: 20250115
  Serious: Yes (Hospitalization)
  Sender: TAKEDA
  Company Number: US-TAKEDA-2024TUS094414

PATIENT
  Sex: Female

DRUGS (2)
  1. FRUQUINTINIB [Suspect]
     Active Substance: FRUQUINTINIB
     Indication: Rectal cancer
     Dosage: 5 MILLIGRAM
     Route: 048
     Dates: start: 20240912
  2. FRUQUINTINIB [Suspect]
     Active Substance: FRUQUINTINIB
     Dosage: 5 MILLIGRAM
     Route: 048

REACTIONS (9)
  - Pain [Unknown]
  - Somnolence [Unknown]
  - Dysphonia [Unknown]
  - Iron deficiency [Unknown]
  - Dry mouth [Unknown]
  - Product dose omission issue [Unknown]
  - Fatigue [Unknown]
  - Decreased appetite [Unknown]
  - Pelvic pain [Recovering/Resolving]
